FAERS Safety Report 4353871-1 (Version None)
Quarter: 2004Q2

REPORT INFORMATION
  Report Type: 
  Country: None (occurrence: None)
  Receive Date: 20040503
  Receipt Date: 20040423
  Transmission Date: 20050107
  Serious: Yes (Life-Threatening)
  Sender: FDA-Public Use
  Company Number: 2004210697FR

PATIENT
  Age: 1 Day
  Sex: Male
  Weight: 2.6 kg

DRUGS (1)
  1. PROSTIN E2 [Suspect]
     Indication: LABOUR INDUCTION
     Dosage: 1 MG, SINGLE DOSE, VAGINAL
     Route: 067
     Dates: start: 20040225, end: 20040225

REACTIONS (4)
  - BRADYCARDIA FOETAL [None]
  - CAESAREAN SECTION [None]
  - COMPLICATIONS OF MATERNAL EXPOSURE TO THERAPEUTIC DRUGS [None]
  - MATERNAL DRUGS AFFECTING FOETUS [None]
